FAERS Safety Report 6894649-4 (Version None)
Quarter: 2010Q3

REPORT INFORMATION
  Report Type: 
  Country: None (occurrence: None)
  Receive Date: 20100802
  Receipt Date: 20100728
  Transmission Date: 20110219
  Serious: Yes (Life-Threatening, Hospitalization)
  Sender: FDA-Public Use
  Company Number: DE-BRISTOL-MYERS SQUIBB COMPANY-15199268

PATIENT
  Age: 73 Year
  Sex: Female

DRUGS (7)
  1. COAPROVEL FILM-COATED TABS [Suspect]
     Dosage: 300MG/25MG
     Route: 048
     Dates: end: 20090526
  2. APROVEL FILM-COATED TABS 300 MG [Suspect]
     Route: 048
     Dates: start: 20090527, end: 20100520
  3. BISOPROLOL [Concomitant]
     Indication: HYPERTENSION
     Dates: start: 20050101
  4. TORSEMIDE [Concomitant]
     Indication: HYPERTENSION
     Dates: start: 20080101
  5. ALLOPURINOL [Concomitant]
     Indication: HYPERURICAEMIA
     Dates: start: 20050101
  6. ACETYLSALICYLIC ACID SRT [Concomitant]
     Dates: start: 20050101
  7. AMLODIPINE [Concomitant]
     Indication: HYPERTENSION
     Dates: start: 20100101

REACTIONS (1)
  - HYPERCALCAEMIA [None]
